FAERS Safety Report 25668364 (Version 3)
Quarter: 2025Q3

REPORT INFORMATION
  Report Type: Spontaneous
  Country: GB (occurrence: GB)
  Receive Date: 20250812
  Receipt Date: 20250922
  Transmission Date: 20251021
  Serious: Yes (Death, Hospitalization, Other)
  Sender: SANDOZ
  Company Number: GB-ADVANZ PHARMA-202408006875

PATIENT
  Sex: Male

DRUGS (9)
  1. LANREOTIDE [Suspect]
     Active Substance: LANREOTIDE
     Route: 058
     Dates: start: 20240425
  2. LANREOTIDE [Suspect]
     Active Substance: LANREOTIDE
     Route: 058
     Dates: start: 20240425
  3. LANREOTIDE [Suspect]
     Active Substance: LANREOTIDE
     Route: 058
     Dates: start: 20250102
  4. LANREOTIDE [Suspect]
     Active Substance: LANREOTIDE
     Route: 058
  5. LANREOTIDE [Suspect]
     Active Substance: LANREOTIDE
     Indication: Neuroendocrine tumour
     Route: 065
  6. LANREOTIDE ACETATE [Suspect]
     Active Substance: LANREOTIDE ACETATE
     Indication: Neuroendocrine tumour
     Dosage: 120 MG, INTERVAL 28 DAYS
     Route: 059
     Dates: start: 20240425
  7. LANREOTIDE ACETATE [Suspect]
     Active Substance: LANREOTIDE ACETATE
     Route: 058
     Dates: start: 20240425
  8. ZOLEDRONIC ACID [Suspect]
     Active Substance: ZOLEDRONIC ACID
     Indication: Product used for unknown indication
     Route: 065
  9. SUNITINIB [Concomitant]
     Active Substance: SUNITINIB
     Indication: Product used for unknown indication
     Dosage: 25 MG, QD  DAILY
     Route: 065

REACTIONS (18)
  - Death [Fatal]
  - Nephrolithiasis [Unknown]
  - Pancreatitis [Unknown]
  - Blood calcium increased [Recovering/Resolving]
  - Cardiac disorder [Unknown]
  - Abdominal pain [Recovering/Resolving]
  - Atelectasis [Unknown]
  - Myocardial infarction [Unknown]
  - Platelet count decreased [Unknown]
  - Ocular hyperaemia [Recovering/Resolving]
  - Hyperglycaemia [Unknown]
  - Dizziness postural [Recovered/Resolved]
  - Lethargy [Unknown]
  - Vomiting [Unknown]
  - Dyspnoea [Recovering/Resolving]
  - Malaise [Unknown]
  - Hypotension [Unknown]
  - Fatigue [Not Recovered/Not Resolved]

NARRATIVE: CASE EVENT DATE: 20240101
